FAERS Safety Report 6699329-6 (Version None)
Quarter: 2010Q2

REPORT INFORMATION
  Report Type: 
  Country: None (occurrence: None)
  Receive Date: 20100426
  Receipt Date: 20100412
  Transmission Date: 20101027
  Serious: Yes (Other)
  Sender: FDA-Public Use
  Company Number: 2010AP000749

PATIENT
  Age: 38 Year
  Sex: Female

DRUGS (1)
  1. SERTRALINE HYDROCHLORIDE [Suspect]
     Indication: DEPRESSION
     Dosage: 200 MG;PO;BID
     Route: 048
     Dates: start: 20071201, end: 20091001

REACTIONS (2)
  - HALLUCINATIONS, MIXED [None]
  - PSYCHOTIC DISORDER [None]
